FAERS Safety Report 4267269-8 (Version None)
Quarter: 2004Q1

REPORT INFORMATION
  Report Type: 
  Country: None (occurrence: None)
  Receive Date: 20040107
  Receipt Date: 20040106
  Transmission Date: 20041129
  Serious: Yes (Death)
  Sender: FDA-Public Use
  Company Number: 04-01-0007

PATIENT
  Age: 66 Year
  Sex: Female

DRUGS (1)
  1. CLOZAPINE [Suspect]
     Dosage: 500-650MG QD ORAL
     Route: 048
     Dates: start: 19990401, end: 20031201

REACTIONS (1)
  - ACUTE RESPIRATORY DISTRESS SYNDROME [None]
